FAERS Safety Report 11772413 (Version 4)
Quarter: 2016Q3

REPORT INFORMATION
  Report Type: Report from Study
  Country: BR (occurrence: BR)
  Receive Date: 20151124
  Receipt Date: 20160909
  Transmission Date: 20161109
  Serious: Yes (Hospitalization)
  Sender: FDA-Public Use
  Company Number: PHHY2015BR153134

PATIENT
  Sex: Female
  Weight: 42 kg

DRUGS (2)
  1. EXJADE [Suspect]
     Active Substance: DEFERASIROX
     Indication: SICKLE CELL ANAEMIA
     Dosage: 1 DF (10 MG/KG), QD (IN THE MORNING)
     Route: 048
     Dates: start: 20151015
  2. HYDREA [Concomitant]
     Active Substance: HYDROXYUREA
     Indication: SICKLE CELL ANAEMIA
     Dosage: 2 DF, QD
     Route: 065

REACTIONS (8)
  - Scratch [Unknown]
  - Malaise [Recovering/Resolving]
  - Dysentery [Recovered/Resolved]
  - Pain [Recovering/Resolving]
  - Peripheral swelling [Unknown]
  - Hypophagia [Recovering/Resolving]
  - Weight decreased [Recovering/Resolving]
  - Osteomyelitis [Unknown]
